FAERS Safety Report 7914725-4 (Version None)
Quarter: 2011Q4

REPORT INFORMATION
  Report Type: 
  Country: None (occurrence: None)
  Receive Date: 20111115
  Receipt Date: 20111109
  Transmission Date: 20120403
  Serious: Yes (Other)
  Sender: FDA-Public Use
  Company Number: PHEH2011US05302

PATIENT
  Sex: Male

DRUGS (5)
  1. ASACOL [Concomitant]
  2. ASPIRIN [Concomitant]
  3. REMICADE [Concomitant]
     Dosage: 378 MG,
  4. METAMUCIL-2 [Concomitant]
  5. RECLAST [Suspect]
     Dosage: 5 MG,
     Route: 042

REACTIONS (3)
  - INFLUENZA LIKE ILLNESS [None]
  - DEAFNESS UNILATERAL [None]
  - PAIN [None]
